FAERS Safety Report 16006649 (Version 11)
Quarter: 2020Q1

REPORT INFORMATION
  Report Type: Spontaneous
  Country: PL (occurrence: PL)
  Receive Date: 20190226
  Receipt Date: 20200310
  Transmission Date: 20200409
  Serious: Yes (Hospitalization, Other)
  Sender: FDA-Public Use
  Company Number: PL-MYLANLABS-2019M1016533

PATIENT
  Age: 65 Year
  Sex: Female

DRUGS (46)
  1. FLUTICASONE. [Suspect]
     Active Substance: FLUTICASONE
     Indication: SOMATIC DYSFUNCTION
     Dosage: UNK
     Route: 065
  2. QUETIAPINE. [Suspect]
     Active Substance: QUETIAPINE
     Indication: AFFECTIVE DISORDER
     Dosage: 200 MG PER DAY
     Route: 065
  3. LAMOTRIGINE. [Suspect]
     Active Substance: LAMOTRIGINE
     Indication: AFFECTIVE DISORDER
     Dosage: UNK
     Route: 065
  4. MIDAZOLAM HYDROCHLORIDE. [Suspect]
     Active Substance: MIDAZOLAM HYDROCHLORIDE
     Indication: BIPOLAR II DISORDER
  5. CLONAZEPAM. [Suspect]
     Active Substance: CLONAZEPAM
     Indication: ANXIETY
  6. ZOLPIDEM [Suspect]
     Active Substance: ZOLPIDEM TARTRATE
     Indication: BIPOLAR II DISORDER
  7. MIDAZOLAM HYDROCHLORIDE. [Suspect]
     Active Substance: MIDAZOLAM HYDROCHLORIDE
     Indication: SLEEP DISORDER
     Dosage: UNK
     Route: 065
  8. PAROXETINE. [Suspect]
     Active Substance: PAROXETINE
     Indication: ANXIETY
  9. HYDROCHLOROTHIAZIDE. [Suspect]
     Active Substance: HYDROCHLOROTHIAZIDE
     Dosage: UNK
     Route: 065
  10. LAMOTRIGINE. [Suspect]
     Active Substance: LAMOTRIGINE
     Indication: ANXIETY
  11. VALSARTAN. [Suspect]
     Active Substance: VALSARTAN
     Indication: SOMATIC SYMPTOM DISORDER
  12. QUETIAPINE. [Suspect]
     Active Substance: QUETIAPINE
     Indication: BIPOLAR DISORDER
  13. ESOMEPRAZOLE SODIUM. [Suspect]
     Active Substance: ESOMEPRAZOLE SODIUM
     Indication: SOMATIC DYSFUNCTION
     Dosage: UNK
     Route: 065
  14. ALPRAZOLAM. [Suspect]
     Active Substance: ALPRAZOLAM
     Indication: ANXIETY
  15. ESOMEPRAZOLE MAGNESIUM DIHYDRATE [Suspect]
     Active Substance: ESOMEPRAZOLE MAGNESIUM
     Indication: SOMATIC SYMPTOM DISORDER
     Dosage: UNK
  16. OLANZAPINE. [Suspect]
     Active Substance: OLANZAPINE
     Indication: ANXIETY
     Dosage: PRN, AD HOC
     Route: 065
  17. VENLAFAXINE [Suspect]
     Active Substance: VENLAFAXINE HYDROCHLORIDE
     Indication: AFFECTIVE DISORDER
     Dosage: UNK
     Route: 065
  18. HYDROCHLOROTHIAZIDE. [Suspect]
     Active Substance: HYDROCHLOROTHIAZIDE
     Indication: SOMATIC SYMPTOM DISORDER
     Dosage: UNK
     Route: 005
  19. ZOLPIDEM [Suspect]
     Active Substance: ZOLPIDEM TARTRATE
     Indication: SLEEP DISORDER
     Dosage: UNK,SOPORIFICALLY
     Route: 065
  20. ZOLPIDEM [Suspect]
     Active Substance: ZOLPIDEM TARTRATE
     Indication: INSOMNIA
  21. VALSARTAN. [Suspect]
     Active Substance: VALSARTAN
     Indication: SOMATIC DYSFUNCTION
     Dosage: UNK
     Route: 065
  22. MONTELUKAST [Suspect]
     Active Substance: MONTELUKAST SODIUM
     Indication: SOMATIC SYMPTOM DISORDER
     Dosage: UNK
     Route: 065
  23. PAROXETINE. [Suspect]
     Active Substance: PAROXETINE
     Indication: BIPOLAR II DISORDER
  24. QUETIAPINE. [Suspect]
     Active Substance: QUETIAPINE
     Indication: ANXIETY
     Dosage: UNK
     Route: 065
  25. NEBIVOLOL. [Suspect]
     Active Substance: NEBIVOLOL
     Indication: SOMATIC SYMPTOM DISORDER
     Dosage: UNK
     Route: 065
  26. CLOBETASOL [Suspect]
     Active Substance: CLOBETASOL
     Indication: SOMATIC DYSFUNCTION
     Dosage: UNK
     Route: 061
  27. ALPRAZOLAM. [Suspect]
     Active Substance: ALPRAZOLAM
     Indication: ANXIETY DISORDER
     Dosage: UNK UNK, PRN
     Route: 065
  28. ALPRAZOLAM. [Suspect]
     Active Substance: ALPRAZOLAM
     Indication: FEAR
     Dosage: UNK
     Route: 065
  29. BUPROPION. [Concomitant]
     Active Substance: BUPROPION
     Indication: PRODUCT USED FOR UNKNOWN INDICATION
     Dosage: QD (UP TO 300MG/DAY)
     Route: 065
  30. FLUTICASONE. [Concomitant]
     Active Substance: FLUTICASONE
     Dosage: UNK
  31. PAROXETINE. [Suspect]
     Active Substance: PAROXETINE
     Indication: BIPOLAR DISORDER
     Dosage: QD (UP TO 40 MG/DAY)
     Route: 065
  32. VENLAFAXINE [Suspect]
     Active Substance: VENLAFAXINE HYDROCHLORIDE
     Indication: BIPOLAR DISORDER
     Dosage: UP 300 MG PER DAY
     Route: 065
  33. VENLAFAXINE [Suspect]
     Active Substance: VENLAFAXINE HYDROCHLORIDE
     Indication: ANXIETY
  34. ESOMEPRAZOLE SODIUM. [Suspect]
     Active Substance: ESOMEPRAZOLE SODIUM
     Indication: SOMATIC SYMPTOM DISORDER
  35. CLONAZEPAM. [Suspect]
     Active Substance: CLONAZEPAM
     Indication: ANXIETY DISORDER
     Dosage: UNK, PRN
     Route: 065
  36. FLUTICASONE. [Suspect]
     Active Substance: FLUTICASONE
     Indication: SOMATIC SYMPTOM DISORDER
  37. OLANZAPINE. [Suspect]
     Active Substance: OLANZAPINE
     Indication: BIPOLAR II DISORDER
     Dosage: UNK
     Route: 065
  38. OLANZAPINE. [Suspect]
     Active Substance: OLANZAPINE
     Indication: FEAR
  39. PAROXETINE. [Suspect]
     Active Substance: PAROXETINE
     Indication: AFFECTIVE DISORDER
     Dosage: UNK
     Route: 065
  40. HYDROCHLOROTHIAZIDE. [Suspect]
     Active Substance: HYDROCHLOROTHIAZIDE
     Indication: SOMATIC DYSFUNCTION
     Dosage: UNK
     Route: 005
  41. SALMETEROL [Suspect]
     Active Substance: SALMETEROL
     Indication: SOMATIC SYMPTOM DISORDER
     Dosage: UNK
     Route: 065
  42. CLOBETASOL [Suspect]
     Active Substance: CLOBETASOL
     Indication: SOMATIC SYMPTOM DISORDER
     Dosage: UNK
     Route: 065
  43. LAMOTRIGINE. [Suspect]
     Active Substance: LAMOTRIGINE
     Indication: BIPOLAR DISORDER
     Dosage: GRADUALLY INCREASED DOSES UP TO 200 MG/DAY
     Route: 065
  44. MIDAZOLAM HYDROCHLORIDE. [Suspect]
     Active Substance: MIDAZOLAM HYDROCHLORIDE
     Indication: ANXIETY
  45. CLONAZEPAM. [Suspect]
     Active Substance: CLONAZEPAM
     Indication: FEAR
     Dosage: UNK
     Route: 065
  46. ZOLPIDEM [Suspect]
     Active Substance: ZOLPIDEM TARTRATE
     Indication: ANXIETY
     Dosage: UNK

REACTIONS (9)
  - Insomnia [Recovering/Resolving]
  - Hepatic enzyme increased [Recovering/Resolving]
  - Anxiety [Recovering/Resolving]
  - Drug ineffective [Unknown]
  - Drug-induced liver injury [Recovered/Resolved]
  - Product use in unapproved indication [Unknown]
  - Therapeutic product effect incomplete [Unknown]
  - Off label use [Unknown]
  - Depression [Recovering/Resolving]
